FAERS Safety Report 19212868 (Version 7)
Quarter: 2022Q3

REPORT INFORMATION
  Report Type: Other
  Country: DE (occurrence: None)
  Receive Date: 20210504
  Receipt Date: 20220728
  Transmission Date: 20221027
  Serious: No
  Sender: FDA-Public Use
  Company Number: DE-ROCHE-2823411

PATIENT
  Age: 43 Year
  Sex: Female
  Weight: 82 kg

DRUGS (4)
  1. OCRELIZUMAB [Suspect]
     Active Substance: OCRELIZUMAB
     Indication: Relapsing multiple sclerosis
     Route: 042
     Dates: start: 20200525, end: 20200612
  2. OCRELIZUMAB [Suspect]
     Active Substance: OCRELIZUMAB
     Route: 042
     Dates: start: 20200612
  3. BACLOFEN [Concomitant]
     Active Substance: BACLOFEN
     Indication: Muscle spasticity
     Route: 048
     Dates: start: 2019
  4. DULOXETINE [Concomitant]
     Active Substance: DULOXETINE
     Indication: Pain
     Route: 048
     Dates: start: 2019

REACTIONS (2)
  - Herpes zoster [Recovered/Resolved]
  - Dysaesthesia [Recovered/Resolved]

NARRATIVE: CASE EVENT DATE: 20201001
